FAERS Safety Report 4783052-9 (Version None)
Quarter: 2005Q3

REPORT INFORMATION
  Report Type: 
  Country: None (occurrence: None)
  Receive Date: 20050928
  Receipt Date: 20050928
  Transmission Date: 20060218
  Serious: Yes (Other)
  Sender: FDA-Public Use
  Company Number: None

PATIENT
  Age: 70 Year
  Sex: Male

DRUGS (2)
  1. OMEPRAZOLE [Suspect]
     Indication: GASTROOESOPHAGEAL REFLUX DISEASE
     Dosage: 20MG DAILY ORALLY
     Route: 048
     Dates: start: 20040101, end: 20041101
  2. OMEPRAZOLE [Suspect]
     Indication: HIATUS HERNIA
     Dosage: 20MG DAILY ORALLY
     Route: 048
     Dates: start: 20040101, end: 20041101

REACTIONS (4)
  - CONDITION AGGRAVATED [None]
  - DISEASE RECURRENCE [None]
  - GASTROOESOPHAGEAL REFLUX DISEASE [None]
  - HIATUS HERNIA [None]
